FAERS Safety Report 23036854 (Version 2)
Quarter: 2024Q3

REPORT INFORMATION
  Report Type: Report from Study
  Country: DE (occurrence: DE)
  Receive Date: 20231006
  Receipt Date: 20240816
  Transmission Date: 20241016
  Serious: Yes (Hospitalization, Other)
  Sender: SANDOZ
  Company Number: DE-002147023-NVSC2021DE101726

PATIENT
  Age: 30 Year
  Sex: Female
  Weight: 69 kg

DRUGS (8)
  1. FILGRASTIM [Suspect]
     Active Substance: FILGRASTIM
     Indication: Haematopoietic stem cell mobilisation
     Dosage: 2700 UG
     Route: 058
     Dates: start: 20140320
  2. FILGRASTIM [Suspect]
     Active Substance: FILGRASTIM
     Dosage: 2700 UG
     Route: 058
     Dates: end: 20140324
  3. CHLORMADINONE ACETATE\ETHINYL ESTRADIOL [Concomitant]
     Active Substance: CHLORMADINONE ACETATE\ETHINYL ESTRADIOL
     Indication: Oral contraception
     Dosage: UNK
     Route: 048
  4. POTASSIUM IODIDE [Concomitant]
     Active Substance: POTASSIUM IODIDE
     Indication: Goitre
     Dosage: UNK
     Route: 048
     Dates: start: 2014
  5. ACETAMINOPHEN [Concomitant]
     Active Substance: ACETAMINOPHEN
     Indication: Product used for unknown indication
     Dosage: UNK
     Route: 048
     Dates: start: 20140321, end: 20140321
  6. ACETAMINOPHEN [Concomitant]
     Active Substance: ACETAMINOPHEN
     Dosage: UNK
     Route: 048
     Dates: start: 20140322, end: 20140322
  7. POTASSIUM CITRATE [Concomitant]
     Active Substance: POTASSIUM CITRATE
     Indication: Product used for unknown indication
     Dosage: UNK
     Route: 048
     Dates: start: 20140324, end: 20140324
  8. TORVATE [Concomitant]
     Indication: Product used for unknown indication
     Dosage: UNK
     Route: 065

REACTIONS (6)
  - Bacterial vaginosis [Recovered/Resolved]
  - Cervical incompetence [Recovered/Resolved]
  - Lower limb fracture [Recovered/Resolved with Sequelae]
  - Leukocytosis [Recovered/Resolved]
  - Live birth [Unknown]
  - Maternal exposure during pregnancy [Unknown]

NARRATIVE: CASE EVENT DATE: 20201101
